FAERS Safety Report 20319804 (Version 2)
Quarter: 2022Q1

REPORT INFORMATION
  Report Type: Report from Study
  Country: US (occurrence: US)
  Receive Date: 20220111
  Receipt Date: 20220215
  Transmission Date: 20220423
  Serious: Yes (Hospitalization, Other)
  Sender: FDA-Public Use
  Company Number: US-BRISTOL-MYERS SQUIBB COMPANY-BMS-2022-001305

PATIENT
  Age: 54 Year
  Sex: Female
  Weight: 88.5 kg

DRUGS (54)
  1. LULIZUMAB PEGOL [Suspect]
     Active Substance: LULIZUMAB PEGOL
     Indication: Renal transplant
     Dosage: 25 MILLIGRAM
     Route: 058
     Dates: start: 20210529, end: 20210529
  2. LULIZUMAB PEGOL [Suspect]
     Active Substance: LULIZUMAB PEGOL
     Dosage: 12.5 MILLIGRAM
     Route: 058
     Dates: start: 20210604, end: 20210604
  3. LULIZUMAB PEGOL [Suspect]
     Active Substance: LULIZUMAB PEGOL
     Dosage: 12.5 MILLIGRAM
     Route: 058
     Dates: start: 20210611, end: 20210611
  4. LULIZUMAB PEGOL [Suspect]
     Active Substance: LULIZUMAB PEGOL
     Dosage: 12.5 MILLIGRAM
     Route: 058
     Dates: start: 20210616, end: 20210616
  5. LULIZUMAB PEGOL [Suspect]
     Active Substance: LULIZUMAB PEGOL
     Dosage: 12.5 MILLIGRAM
     Route: 058
     Dates: start: 20210624, end: 20210624
  6. LULIZUMAB PEGOL [Suspect]
     Active Substance: LULIZUMAB PEGOL
     Dosage: 12.5 MILLIGRAM
     Route: 058
     Dates: start: 20210630, end: 20210630
  7. LULIZUMAB PEGOL [Suspect]
     Active Substance: LULIZUMAB PEGOL
     Dosage: 12.5 MILLIGRAM
     Route: 058
     Dates: start: 20210708, end: 20210708
  8. LULIZUMAB PEGOL [Suspect]
     Active Substance: LULIZUMAB PEGOL
     Dosage: 12.5 MILLIGRAM
     Route: 058
     Dates: start: 20210716, end: 20210716
  9. LULIZUMAB PEGOL [Suspect]
     Active Substance: LULIZUMAB PEGOL
     Dosage: 12.5 MILLIGRAM
     Route: 058
     Dates: start: 20210721, end: 20210721
  10. LULIZUMAB PEGOL [Suspect]
     Active Substance: LULIZUMAB PEGOL
     Dosage: 12.5 MILLIGRAM
     Route: 058
     Dates: start: 20210730, end: 20210730
  11. LULIZUMAB PEGOL [Suspect]
     Active Substance: LULIZUMAB PEGOL
     Dosage: 12.5 MILLIGRAM
     Route: 058
     Dates: start: 20210806, end: 20210806
  12. LULIZUMAB PEGOL [Suspect]
     Active Substance: LULIZUMAB PEGOL
     Dosage: 12.5 MILLIGRAM
     Route: 058
     Dates: start: 20210813, end: 20210813
  13. THYMOCYTE IMMUNE GLOBULIN NOS [Suspect]
     Active Substance: THYMOCYTE IMMUNE GLOBULIN NOS
     Indication: Renal transplant
     Dosage: 1.5 MILLIGRAM/KILOGRAM, QD
     Route: 042
     Dates: start: 20210528, end: 20210530
  14. THYMOCYTE IMMUNE GLOBULIN NOS [Suspect]
     Active Substance: THYMOCYTE IMMUNE GLOBULIN NOS
     Dosage: 75 MILLIGRAM
     Route: 042
     Dates: start: 20210924, end: 20210924
  15. METHYLPREDNISOLONE [Suspect]
     Active Substance: METHYLPREDNISOLONE
     Indication: Renal transplant
     Dosage: 500 MILLIGRAM, SINGLE DOSE
     Route: 042
     Dates: start: 20210528, end: 20210528
  16. METHYLPREDNISOLONE [Suspect]
     Active Substance: METHYLPREDNISOLONE
     Dosage: 250 MILLIGRAM SINGLE DOSE
     Route: 042
     Dates: start: 20210529
  17. METHYLPREDNISOLONE [Suspect]
     Active Substance: METHYLPREDNISOLONE
     Dosage: 125 MILLIGRAM SINGLE DOSE
     Route: 042
     Dates: start: 20210530, end: 20210530
  18. PREDNISONE [Suspect]
     Active Substance: PREDNISONE
     Indication: Renal transplant
     Dosage: 60 MILLIGRAM
     Route: 048
     Dates: start: 20210531, end: 20210531
  19. PREDNISONE [Suspect]
     Active Substance: PREDNISONE
     Dosage: 30 MILLIGRAM
     Route: 048
     Dates: start: 20210601, end: 20210604
  20. PREDNISONE [Suspect]
     Active Substance: PREDNISONE
     Dosage: 20 MILLIGRAM
     Route: 048
     Dates: start: 20210605, end: 20210614
  21. PREDNISONE [Suspect]
     Active Substance: PREDNISONE
     Dosage: 10 MILLIGRAM
     Route: 048
     Dates: start: 20210615, end: 20210621
  22. PREDNISONE [Suspect]
     Active Substance: PREDNISONE
     Dosage: 5 MILLIGRAM
     Route: 048
     Dates: start: 20210622, end: 20210903
  23. PREDNISONE [Suspect]
     Active Substance: PREDNISONE
     Dosage: 5 MILLIGRAM
     Route: 048
     Dates: start: 20211215, end: 20211215
  24. TOCILIZUMAB [Suspect]
     Active Substance: TOCILIZUMAB
     Indication: Renal transplant
     Dosage: 758.4 MILLIGRAM
     Route: 042
     Dates: start: 20210530, end: 20210530
  25. TOCILIZUMAB [Suspect]
     Active Substance: TOCILIZUMAB
     Dosage: 162 MILLIGRAM
     Route: 042
     Dates: start: 20210611, end: 20210611
  26. TOCILIZUMAB [Suspect]
     Active Substance: TOCILIZUMAB
     Dosage: 162 MILLIGRAM
     Route: 042
     Dates: start: 20210624, end: 20210624
  27. TOCILIZUMAB [Suspect]
     Active Substance: TOCILIZUMAB
     Dosage: 162 MILLIGRAM
     Route: 042
     Dates: start: 20210721, end: 20210721
  28. TOCILIZUMAB [Suspect]
     Active Substance: TOCILIZUMAB
     Dosage: 162 MILLIGRAM
     Route: 042
     Dates: start: 20210806, end: 20210806
  29. EVEROLIMUS [Suspect]
     Active Substance: EVEROLIMUS
     Indication: Renal transplant
     Dosage: 0.75 MILLIGRAM, BID
     Route: 065
     Dates: start: 20210611, end: 20210616
  30. EVEROLIMUS [Suspect]
     Active Substance: EVEROLIMUS
     Dosage: 1.5 MILLIGRAM, BID
     Route: 065
     Dates: start: 20210616, end: 20210621
  31. EVEROLIMUS [Suspect]
     Active Substance: EVEROLIMUS
     Dosage: 3 MILLIGRAM, BID
     Route: 065
     Dates: start: 20210621, end: 20210708
  32. EVEROLIMUS [Suspect]
     Active Substance: EVEROLIMUS
     Dosage: 2.25 MILLIGRAM, BID
     Route: 065
     Dates: start: 20210709, end: 20210716
  33. EVEROLIMUS [Suspect]
     Active Substance: EVEROLIMUS
     Dosage: 1.5 MILLIGRAM, BID
     Route: 065
     Dates: start: 20210717, end: 20210730
  34. BELATACEPT [Suspect]
     Active Substance: BELATACEPT
     Indication: Renal transplant
     Dosage: 462.5 MILLIGRAM
     Route: 042
     Dates: start: 20210819
  35. MYCOPHENOLATE MOFETIL [Suspect]
     Active Substance: MYCOPHENOLATE MOFETIL
     Indication: Renal transplant
     Dosage: 1000 MILLIGRAM, BID
     Route: 065
     Dates: start: 20210528, end: 20210624
  36. MYCOPHENOLATE MOFETIL [Suspect]
     Active Substance: MYCOPHENOLATE MOFETIL
     Dosage: 500 MILLIGRAM, BID
     Route: 065
     Dates: start: 20210625, end: 20210625
  37. MYCOPHENOLATE MOFETIL [Suspect]
     Active Substance: MYCOPHENOLATE MOFETIL
     Dosage: 500 MILLIGRAM, BID
     Route: 065
     Dates: start: 20210731, end: 20210810
  38. MYCOPHENOLATE MOFETIL [Suspect]
     Active Substance: MYCOPHENOLATE MOFETIL
     Dosage: 750 MILLIGRAM, BID
     Dates: start: 20210811, end: 20210813
  39. MYCOPHENOLATE MOFETIL [Suspect]
     Active Substance: MYCOPHENOLATE MOFETIL
     Dosage: 500 MILLIGRAM, BID
     Route: 065
     Dates: start: 20210814, end: 20210819
  40. MYCOPHENOLATE MOFETIL [Suspect]
     Active Substance: MYCOPHENOLATE MOFETIL
     Dosage: 250 MILLIGRAM, BID
     Route: 065
     Dates: start: 20210820, end: 20210820
  41. MYCOPHENOLATE MOFETIL [Suspect]
     Active Substance: MYCOPHENOLATE MOFETIL
     Dosage: 500 MILLIGRAM, QD
     Route: 065
     Dates: start: 20210821, end: 20210830
  42. MYCOPHENOLATE MOFETIL [Suspect]
     Active Substance: MYCOPHENOLATE MOFETIL
     Dosage: 250 MILLIGRAM, QD
     Route: 065
     Dates: start: 20210821, end: 20210830
  43. MYCOPHENOLATE MOFETIL [Suspect]
     Active Substance: MYCOPHENOLATE MOFETIL
     Dosage: 250 MILLIGRAM, BID
     Route: 065
     Dates: start: 20210831, end: 20210903
  44. MYCOPHENOLATE MOFETIL [Suspect]
     Active Substance: MYCOPHENOLATE MOFETIL
     Dosage: 250 MILLIGRAM, QD
     Route: 065
     Dates: start: 20210903, end: 20210908
  45. LIPITOR [Concomitant]
     Active Substance: ATORVASTATIN CALCIUM
     Indication: Product used for unknown indication
     Dosage: UNK
     Route: 065
     Dates: start: 20210108
  46. MEPRON [Concomitant]
     Active Substance: ATOVAQUONE
     Indication: Product used for unknown indication
     Dosage: 1500 MILLIGRAM, QD
     Route: 048
     Dates: start: 20211018
  47. COREG [Concomitant]
     Active Substance: CARVEDILOL
     Indication: Product used for unknown indication
     Dosage: UNK
     Route: 065
     Dates: start: 20210529
  48. BASAGLAR [Concomitant]
     Active Substance: INSULIN GLARGINE
     Indication: Product used for unknown indication
     Dosage: UNK
     Route: 065
     Dates: start: 20201007
  49. HUMALOG [Concomitant]
     Active Substance: INSULIN LISPRO
     Indication: Product used for unknown indication
     Dosage: UNK
     Route: 065
     Dates: start: 20210608
  50. LANTUS [Concomitant]
     Active Substance: INSULIN GLARGINE
     Indication: Product used for unknown indication
     Dosage: UNK
     Route: 065
     Dates: start: 20201007
  51. TOUJEO [Concomitant]
     Active Substance: INSULIN GLARGINE
     Indication: Product used for unknown indication
     Dosage: UNK
     Route: 065
     Dates: start: 20201007
  52. VERAPAMIL [Concomitant]
     Active Substance: VERAPAMIL HYDROCHLORIDE
     Indication: Product used for unknown indication
     Dosage: UNK
     Route: 065
     Dates: start: 20210202
  53. HEPARIN [Concomitant]
     Active Substance: HEPARIN SODIUM
     Indication: Product used for unknown indication
     Dosage: UNK
     Route: 065
     Dates: start: 20210528
  54. VANCOMYCIN [Concomitant]
     Active Substance: VANCOMYCIN
     Indication: Product used for unknown indication
     Dosage: 125 MILLIGRAM, QD
     Route: 048
     Dates: start: 20211108

REACTIONS (1)
  - Pneumonia [Recovering/Resolving]

NARRATIVE: CASE EVENT DATE: 20211215
